FAERS Safety Report 13775850 (Version 1)
Quarter: 2017Q3

REPORT INFORMATION
  Report Type: Spontaneous
  Country: AR (occurrence: AR)
  Receive Date: 20170721
  Receipt Date: 20170721
  Transmission Date: 20171127
  Serious: Yes (Other)
  Sender: FDA-Public Use
  Company Number: AR-BAYER-2017-134218

PATIENT
  Age: 73 Year
  Sex: Female

DRUGS (2)
  1. STIVARGA [Suspect]
     Active Substance: REGORAFENIB
     Indication: RECTAL ADENOCARCINOMA
     Dosage: 160 MG DAILY DOSE FOR 3 WEEKS AND 1 WEEK OF REST
     Dates: start: 201510
  2. STIVARGA [Suspect]
     Active Substance: REGORAFENIB
     Indication: RECTAL ADENOCARCINOMA
     Dosage: 120 MG DAILY DOSE

REACTIONS (4)
  - Diarrhoea [Unknown]
  - Carcinoembryonic antigen increased [None]
  - Asthenia [Unknown]
  - Metastases to lung [None]
